FAERS Safety Report 11700894 (Version 1)
Quarter: 2015Q4

REPORT INFORMATION
  Report Type: Spontaneous
  Country: CH (occurrence: CH)
  Receive Date: 20151105
  Receipt Date: 20151105
  Transmission Date: 20160304
  Serious: Yes (Hospitalization)
  Sender: FDA-Public Use
  Company Number: CH-ASTRAZENECA-2015SF04411

PATIENT
  Age: 29527 Day
  Sex: Female
  Weight: 31 kg

DRUGS (12)
  1. SEROPRAM [Interacting]
     Active Substance: CITALOPRAM HYDROBROMIDE
     Indication: DEPRESSION
     Route: 048
     Dates: start: 2005
  2. TEMGESIC [Concomitant]
     Active Substance: BUPRENORPHINE HYDROCHLORIDE
     Route: 060
     Dates: start: 20150825, end: 20150914
  3. XANAX [Concomitant]
     Active Substance: ALPRAZOLAM
     Route: 048
     Dates: start: 20150825
  4. PARIET [Concomitant]
     Active Substance: RABEPRAZOLE SODIUM
     Indication: GASTROOESOPHAGEAL REFLUX DISEASE
     Route: 048
     Dates: start: 2005, end: 20150822
  5. NEXIUM [Suspect]
     Active Substance: ESOMEPRAZOLE MAGNESIUM
     Indication: GASTROOESOPHAGEAL REFLUX DISEASE
     Route: 048
     Dates: start: 20150822
  6. SEROPRAM [Interacting]
     Active Substance: CITALOPRAM HYDROBROMIDE
     Indication: DEPRESSION
     Dosage: GENERIC CITALOPRAM
     Route: 048
     Dates: start: 20150822
  7. TEMESTA [Concomitant]
     Active Substance: LORAZEPAM
     Route: 048
     Dates: start: 2005
  8. BULBOID [Concomitant]
     Route: 054
     Dates: start: 20150823
  9. XANAX [Concomitant]
     Active Substance: ALPRAZOLAM
     Route: 048
     Dates: start: 20150908, end: 20150914
  10. LAXOBERON [Concomitant]
     Active Substance: SODIUM PICOSULFATE
     Route: 048
     Dates: start: 20150902
  11. NEXIUM [Interacting]
     Active Substance: ESOMEPRAZOLE MAGNESIUM
     Indication: GASTROOESOPHAGEAL REFLUX DISEASE
     Route: 048
  12. SEROPRAM [Interacting]
     Active Substance: CITALOPRAM HYDROBROMIDE
     Indication: DEPRESSION
     Route: 048
     Dates: start: 20150926, end: 20151003

REACTIONS (4)
  - Drug interaction [Unknown]
  - Encephalopathy [Recovering/Resolving]
  - Disturbance in attention [Recovering/Resolving]
  - Antidepressant drug level above therapeutic [Recovering/Resolving]

NARRATIVE: CASE EVENT DATE: 20150914
